FAERS Safety Report 12944503 (Version 1)
Quarter: 2016Q4

REPORT INFORMATION
  Report Type: Spontaneous
  Country: US (occurrence: US)
  Receive Date: 20161115
  Receipt Date: 20161115
  Transmission Date: 20170207
  Serious: Yes (Other)
  Sender: FDA-Public Use
  Company Number: None

PATIENT
  Age: 57 Year
  Sex: Female
  Weight: 104.8 kg

DRUGS (5)
  1. VITAMIN D3 [Concomitant]
     Active Substance: CHOLECALCIFEROL
  2. LEVOTHYROXINE SODIUM. [Suspect]
     Active Substance: LEVOTHYROXINE SODIUM
     Indication: THYROIDECTOMY
     Dosage: OTHER STRENGTH:MCG;QUANTITY:1 TABLET(S); PO?
     Route: 048
     Dates: start: 20161106, end: 20161110
  3. WOMAN^S MULTI [Concomitant]
  4. OMEGA 3 [Concomitant]
     Active Substance: OMEGA-3 FATTY ACIDS
  5. NOW BRAND [Concomitant]

REACTIONS (4)
  - Dizziness [None]
  - Chest discomfort [None]
  - Headache [None]
  - Heart rate irregular [None]

NARRATIVE: CASE EVENT DATE: 20161110
